FAERS Safety Report 8346177-7 (Version None)
Quarter: 2012Q2

REPORT INFORMATION
  Report Type: 
  Country: None (occurrence: None)
  Receive Date: 20120509
  Receipt Date: 20120425
  Transmission Date: 20120825
  Serious: Yes (Disabling, Other)
  Sender: FDA-Public Use
  Company Number: US-MYLANLABS-2009AC000259

PATIENT
  Age: 77 Year
  Sex: Female
  Weight: 68.04 kg

DRUGS (41)
  1. NIFEDIPINE [Concomitant]
  2. VICODIN [Concomitant]
  3. HUMULIN R [Concomitant]
     Dosage: 70/30 AS DIRECTED
  4. NSAID'S [Concomitant]
  5. LEVOTHYROXINE SODIUM [Concomitant]
  6. CEPHALEXIN [Concomitant]
  7. CLOTRIMAZOLE [Concomitant]
  8. ANTIBIOTICS [Concomitant]
  9. GLUCOPHAGE [Concomitant]
  10. DIGOXIN [Suspect]
     Route: 048
     Dates: start: 19980116, end: 20090522
  11. LISINOPRIL [Concomitant]
  12. IPRATROPIUM BROMIDE [Concomitant]
  13. AMOXICILLIN [Concomitant]
  14. ATROVENT [Concomitant]
  15. MEVACOR [Concomitant]
     Indication: BLOOD CHOLESTEROL
  16. SINGULAIR [Concomitant]
  17. MORPHINE [Concomitant]
  18. METOPROLOL TARTRATE [Concomitant]
  19. MINOCYCLINE HCL [Concomitant]
  20. ELOCON [Concomitant]
  21. SODIUM CHLORIDE [Concomitant]
     Route: 045
  22. GLIPIZIDE [Concomitant]
  23. ALCAINE [Concomitant]
  24. DARVOCET [Concomitant]
  25. NIFEDIPINE [Concomitant]
  26. INSULIN [Concomitant]
  27. LORAZEPAM [Concomitant]
  28. PENICILLIN [Concomitant]
  29. BENZOYL PEROXIDE [Concomitant]
  30. ASPIRIN [Concomitant]
  31. VIACTIV /00751501/ [Concomitant]
  32. ACTOS [Concomitant]
  33. MEDROL [Concomitant]
  34. DUONEB [Concomitant]
  35. LOVASTATIN [Concomitant]
  36. ALBUTEROL [Concomitant]
     Dosage: 2 PUFFS BID
  37. XANAX [Concomitant]
  38. LOPROX [Concomitant]
  39. COTRIM [Concomitant]
  40. INFLUENZA VACCINE [Concomitant]
  41. TETANUS VACCIN [Concomitant]

REACTIONS (136)
  - ECONOMIC PROBLEM [None]
  - ANHEDONIA [None]
  - FREQUENT BOWEL MOVEMENTS [None]
  - COUGH [None]
  - FACIAL BONES FRACTURE [None]
  - CARDIAC VALVE DISEASE [None]
  - CARDIAC DISORDER [None]
  - DRY EYE [None]
  - CHEST X-RAY ABNORMAL [None]
  - CELLULITIS [None]
  - AORTIC ARTERIOSCLEROSIS [None]
  - AORTIC CALCIFICATION [None]
  - VARICOSE VEIN [None]
  - ULTRASOUND DOPPLER ABNORMAL [None]
  - PAIN [None]
  - ILL-DEFINED DISORDER [None]
  - CONJUNCTIVAL ABRASION [None]
  - ANGINA PECTORIS [None]
  - DIVERTICULITIS [None]
  - REFUSAL OF TREATMENT BY PATIENT [None]
  - HYPOGLYCAEMIA [None]
  - FURUNCLE [None]
  - INFECTED DERMAL CYST [None]
  - OPEN WOUND [None]
  - DYSPNOEA EXERTIONAL [None]
  - WEIGHT INCREASED [None]
  - LIMB INJURY [None]
  - ANXIETY [None]
  - BREAST MASS [None]
  - SPINAL X-RAY ABNORMAL [None]
  - SKIN LESION [None]
  - ALBUMIN URINE [None]
  - LACRIMATION INCREASED [None]
  - CATARACT [None]
  - ATELECTASIS [None]
  - JOINT STIFFNESS [None]
  - TREATMENT NONCOMPLIANCE [None]
  - BLOOD CHOLESTEROL INCREASED [None]
  - OEDEMA [None]
  - PROTEINURIA [None]
  - CHEST PAIN [None]
  - NOCTURIA [None]
  - BUNDLE BRANCH BLOCK LEFT [None]
  - WEIGHT DECREASED [None]
  - X-RAY LIMB ABNORMAL [None]
  - LEFT ATRIAL DILATATION [None]
  - BLOOD GLUCOSE DECREASED [None]
  - BREATH SOUNDS ABNORMAL [None]
  - DIABETES MELLITUS [None]
  - DEAFNESS [None]
  - PULMONARY HYPERTENSION [None]
  - RASH [None]
  - PRODUCTIVE COUGH [None]
  - FATIGUE [None]
  - BRONCHITIS [None]
  - DYSARTHRIA [None]
  - WOUND [None]
  - CONDITION AGGRAVATED [None]
  - STRESS [None]
  - ULTRASOUND BREAST ABNORMAL [None]
  - COMPUTERISED TOMOGRAM ABDOMEN ABNORMAL [None]
  - VENTRICULAR HYPERTROPHY [None]
  - ARCUS LIPOIDES [None]
  - PYREXIA [None]
  - INCREASED UPPER AIRWAY SECRETION [None]
  - PHYSICAL EXAMINATION ABNORMAL [None]
  - SKIN INFECTION [None]
  - JOINT RANGE OF MOTION DECREASED [None]
  - ARTHRITIS [None]
  - RHINITIS ALLERGIC [None]
  - SKELETAL INJURY [None]
  - NOCTURNAL DYSPNOEA [None]
  - CONSTIPATION [None]
  - NASAL DISCOMFORT [None]
  - BREAST CYST [None]
  - SPINAL OSTEOARTHRITIS [None]
  - ECHOCARDIOGRAM ABNORMAL [None]
  - LOW DENSITY LIPOPROTEIN INCREASED [None]
  - GLYCOSYLATED HAEMOGLOBIN INCREASED [None]
  - STAPHYLOCOCCAL SKIN INFECTION [None]
  - EXOSTOSIS [None]
  - ELECTROCARDIOGRAM AMBULATORY ABNORMAL [None]
  - FALL [None]
  - CAROTID ARTERY STENOSIS [None]
  - EPISTAXIS [None]
  - HEAD INJURY [None]
  - DIABETIC RETINOPATHY [None]
  - DISEASE RECURRENCE [None]
  - LIGAMENT SPRAIN [None]
  - LACERATION [None]
  - MEDICAL DIET [None]
  - JOINT INJURY [None]
  - ELECTROCARDIOGRAM ABNORMAL [None]
  - HYPOTHYROIDISM [None]
  - PHLEBOLITH [None]
  - COMPUTERISED TOMOGRAM ABNORMAL [None]
  - PALPITATIONS [None]
  - CREPITATIONS [None]
  - CARDIAC MURMUR [None]
  - BLOOD UREA NITROGEN/CREATININE RATIO INCREASED [None]
  - INJURY [None]
  - OROPHARYNGEAL PAIN [None]
  - EYE PAIN [None]
  - CONTUSION [None]
  - DISEASE PROGRESSION [None]
  - EYE IRRITATION [None]
  - ARTHRALGIA [None]
  - RECURRING SKIN BOILS [None]
  - JOINT SWELLING [None]
  - BODY TEMPERATURE INCREASED [None]
  - HYPOACUSIS [None]
  - TOOTH FRACTURE [None]
  - CHEST DISCOMFORT [None]
  - HYPERLIPIDAEMIA [None]
  - ATROPHIC VULVOVAGINITIS [None]
  - BLOOD GLUCOSE INCREASED [None]
  - HEART SOUNDS ABNORMAL [None]
  - LOSS OF EMPLOYMENT [None]
  - NASAL CONGESTION [None]
  - SYNCOPE [None]
  - ASTHMA [None]
  - ATRIOVENTRICULAR BLOCK FIRST DEGREE [None]
  - KNEE ARTHROPLASTY [None]
  - HYPERTENSION [None]
  - DRUG INEFFECTIVE [None]
  - CHRONIC OBSTRUCTIVE PULMONARY DISEASE [None]
  - TREMOR [None]
  - ECCHYMOSIS [None]
  - MUSCULOSKELETAL CHEST PAIN [None]
  - DIZZINESS [None]
  - ARTERIOSCLEROSIS [None]
  - SWELLING [None]
  - SACROILIITIS [None]
  - SCAR [None]
  - OSTEOPENIA [None]
  - OSTEOARTHRITIS [None]
